FAERS Safety Report 25272071 (Version 3)
Quarter: 2025Q2

REPORT INFORMATION
  Report Type: Spontaneous
  Country: JP (occurrence: JP)
  Receive Date: 20250506
  Receipt Date: 20250627
  Transmission Date: 20250716
  Serious: Yes (Life-Threatening, Hospitalization)
  Sender: ABBVIE
  Company Number: JP-ABBVIE-6261221

PATIENT
  Age: 57 Year
  Sex: Female
  Weight: 47 kg

DRUGS (5)
  1. RINVOQ [Suspect]
     Active Substance: UPADACITINIB
     Indication: Colitis ulcerative
     Dosage: 15 MILLIGRAM
     Route: 048
     Dates: start: 20250327, end: 20250412
  2. ESOMEPRAZOLE MAGNESIUM [Concomitant]
     Active Substance: ESOMEPRAZOLE MAGNESIUM
     Indication: Gastrooesophageal reflux disease
     Route: 048
  3. MESALAMINE [Concomitant]
     Active Substance: MESALAMINE
     Indication: Colitis ulcerative
     Dosage: 2400 MILLIGRAM
     Route: 048
  4. OMEGA-3-ACID ETHYL ESTERS [Concomitant]
     Active Substance: OMEGA-3-ACID ETHYL ESTERS
     Indication: Hyperlipidaemia
     Dosage: 2 SACHET
     Route: 048
  5. BIFIDOBACTERIUM LONGUM [Concomitant]
     Active Substance: BIFIDOBACTERIUM LONGUM
     Indication: Colitis ulcerative
     Route: 048

REACTIONS (2)
  - Meningitis [Recovering/Resolving]
  - Colitis ulcerative [Recovering/Resolving]

NARRATIVE: CASE EVENT DATE: 20250408
